FAERS Safety Report 7615725-4 (Version None)
Quarter: 2011Q3

REPORT INFORMATION
  Report Type: 
  Country: None (occurrence: None)
  Receive Date: 20110711
  Receipt Date: 20110628
  Transmission Date: 20111222
  Serious: Yes (Hospitalization)
  Sender: FDA-Public Use
  Company Number: 2011HGS-002359

PATIENT
  Sex: Female
  Weight: 68.0396 kg

DRUGS (17)
  1. BENLYSTA [Suspect]
     Indication: SYSTEMIC LUPUS ERYTHEMATOSUS
     Dosage: 10 MG/KG, 1 IN 14 D, INTRAVENOUS DRIP
     Route: 041
     Dates: start: 20110505, end: 20110517
  2. ACYCLOVIR (ACICLOVIR) (ACICLOVIR) [Concomitant]
  3. AMLODIPINE [Concomitant]
  4. DIGOXIN [Concomitant]
  5. OMEPRAZOLE [Concomitant]
  6. ALLOPURINOL [Concomitant]
  7. NITROFURANTOIN (NITROFURANTOIN) (NITROFURANTOIN) [Concomitant]
  8. DHEA(PRASTERONE) (PRASTERONE) [Concomitant]
  9. BABY ASPIRIN (ACETYLSALICYLIC ACID) (ACETYLSALICYLIC ACID) [Concomitant]
  10. PREDNISONE [Concomitant]
  11. SPIRONOLACTONE [Concomitant]
  12. FOSAMAX [Concomitant]
  13. ALPRAZOLAM [Concomitant]
  14. GABAPENTIN (GABAPENT IN) (GABAPENTIN) [Concomitant]
  15. FUROSEMIDE [Concomitant]
  16. COUMADIN [Concomitant]
  17. BENLYSTA [Concomitant]

REACTIONS (10)
  - AMNESIA [None]
  - MENTAL IMPAIRMENT [None]
  - FALL [None]
  - CONFUSIONAL STATE [None]
  - ASTHENIA [None]
  - MALAISE [None]
  - HYPERTENSION [None]
  - FEELING ABNORMAL [None]
  - MOVEMENT DISORDER [None]
  - BALANCE DISORDER [None]
